FAERS Safety Report 6122743-4 (Version None)
Quarter: 2009Q1

REPORT INFORMATION
  Report Type: 
  Country: None (occurrence: None)
  Receive Date: 20090318
  Receipt Date: 20081222
  Transmission Date: 20090719
  Serious: No
  Sender: FDA-Public Use
  Company Number: US-AMGEN-KDL325204

PATIENT
  Sex: Female

DRUGS (2)
  1. NEULASTA [Suspect]
     Indication: CHEMOTHERAPY
     Dates: start: 20081219
  2. HERCEPTIN [Concomitant]

REACTIONS (2)
  - BONE PAIN [None]
  - INFLUENZA LIKE ILLNESS [None]
